FAERS Safety Report 9527597 (Version 1)
Quarter: 2013Q1

REPORT INFORMATION
  Report Type: Spontaneous
  Country: US (occurrence: None)
  Receive Date: 20130314
  Receipt Date: 20130314
  Transmission Date: 20140127
  Serious: Yes (Other)
  Sender: FDA-Public Use
  Company Number: 1212USA002582

PATIENT
  Age: 66 Year
  Sex: Male
  Weight: 123.4 kg

DRUGS (3)
  1. PEGINTRON [Suspect]
     Indication: HEPATITIS C
     Dosage: REDIPEN
     Dates: start: 20121202
  2. RIBAVIRIN (RIBAVIRIN) CAPSULE [Suspect]
     Indication: HEPATITIS C
     Dosage: UNK, ORAL
     Route: 048
     Dates: start: 20121203
  3. VICTRELIS [Suspect]
     Indication: HEPATITIS C
     Dosage: UNK, ORAL
     Route: 048
     Dates: start: 20121231

REACTIONS (12)
  - Back pain [None]
  - Vomiting [None]
  - Weight decreased [None]
  - Chills [None]
  - Headache [None]
  - Nausea [None]
  - Hypoaesthesia [None]
  - Hypersomnia [None]
  - Decreased appetite [None]
  - Somnolence [None]
  - Lacrimation increased [None]
  - Vision blurred [None]
